FAERS Safety Report 10234217 (Version 1)
Quarter: 2014Q2

REPORT INFORMATION
  Report Type: Spontaneous
  Country: AU (occurrence: AU)
  Receive Date: 20140612
  Receipt Date: 20140612
  Transmission Date: 20141212
  Serious: Yes (Other)
  Sender: FDA-Public Use
  Company Number: AU-MYLANLABS-2014S1012861

PATIENT
  Sex: Female

DRUGS (2)
  1. TEMAZE [Suspect]
     Indication: INSOMNIA
  2. ENDEP [Suspect]
     Indication: NEUROPATHY PERIPHERAL

REACTIONS (2)
  - Weight increased [Recovered/Resolved]
  - Palpitations [Recovered/Resolved]
